FAERS Safety Report 4479576-4 (Version None)
Quarter: 2004Q4

REPORT INFORMATION
  Report Type: 
  Country: None (occurrence: None)
  Receive Date: 20041018
  Receipt Date: 20041005
  Transmission Date: 20050328
  Serious: Yes (Death)
  Sender: FDA-Public Use
  Company Number: 2004073760

PATIENT
  Age: 51 Year
  Sex: Male

DRUGS (7)
  1. CEFOPERAZONE/SULBACTAM (CEFOPERAZONE, SULBACTAM) [Suspect]
     Indication: PROPHYLAXIS
     Dosage: 3 GRAM (1.5 GRAM, 2 IN 1 D) INTRAVENOUS
     Route: 042
     Dates: start: 20040903, end: 20040913
  2. FLUCONAZOLE [Concomitant]
  3. RANITIDINE HYDROCHLORIDE [Concomitant]
  4. HEPARIN-FRACTION, SODIUM SALT [Concomitant]
  5. PARACETAMOL [Concomitant]
  6. MULTIVITAMIN [Concomitant]
  7. CLINDAMYCIN HYDROCHLORIDE [Concomitant]

REACTIONS (2)
  - PROTHROMBIN TIME PROLONGED [None]
  - PULMONARY EMBOLISM [None]
